FAERS Safety Report 18113780 (Version 2)
Quarter: 2021Q1

REPORT INFORMATION
  Report Type: Spontaneous
  Country: US (occurrence: US)
  Receive Date: 20200805
  Receipt Date: 20210317
  Transmission Date: 20210419
  Serious: Yes (Other)
  Sender: FDA-Public Use
  Company Number: US-GLAXOSMITHKLINE-US2020150949

PATIENT
  Sex: Male

DRUGS (9)
  1. ZANTAC [Suspect]
     Active Substance: RANITIDINE HYDROCHLORIDE
  2. ZANTAC [Suspect]
     Active Substance: RANITIDINE HYDROCHLORIDE
     Indication: GASTRIC DISORDER
     Dosage: 150 MG, QD
     Route: 065
     Dates: start: 198306, end: 200702
  3. RANITIDINE CAPSULE [Suspect]
     Active Substance: RANITIDINE
     Indication: GASTRIC DISORDER
     Dosage: 150 MG, QD
     Route: 065
     Dates: start: 198306, end: 200702
  4. RANITIDINE. [Suspect]
     Active Substance: RANITIDINE
     Indication: GASTRIC DISORDER
     Dosage: 150 MG, QD
     Route: 065
     Dates: start: 199701, end: 200701
  5. RANITIDINE. [Suspect]
     Active Substance: RANITIDINE
     Indication: GASTRIC DISORDER
     Dosage: 150 MG, QD
     Route: 065
     Dates: start: 199701, end: 200701
  6. ZANTAC [Suspect]
     Active Substance: RANITIDINE HYDROCHLORIDE
     Indication: GASTRIC DISORDER
     Dosage: 150 MG BOTH
     Route: 065
     Dates: start: 198306, end: 200702
  7. RANITIDINE. [Suspect]
     Active Substance: RANITIDINE
  8. RANITIDINE HCI [Suspect]
     Active Substance: RANITIDINE HYDROCHLORIDE
  9. ZANTAC [Suspect]
     Active Substance: RANITIDINE HYDROCHLORIDE
     Indication: GASTRIC DISORDER
     Dosage: 150 MG, QD
     Route: 065
     Dates: start: 198306, end: 200702

REACTIONS (1)
  - Colorectal cancer [Unknown]
